FAERS Safety Report 9094788 (Version 4)
Quarter: 2013Q3

REPORT INFORMATION
  Report Type: Spontaneous
  Country: US (occurrence: US)
  Receive Date: 20130220
  Receipt Date: 20130918
  Transmission Date: 20140515
  Serious: No
  Sender: FDA-Public Use
  Company Number: US-BIOGENIDEC-2013BI014074

PATIENT
  Age: 45 Year
  Sex: Male

DRUGS (2)
  1. TYSABRI [Suspect]
     Indication: MULTIPLE SCLEROSIS
     Route: 042
     Dates: start: 20120418
  2. AVONEX [Concomitant]
     Indication: MULTIPLE SCLEROSIS
     Route: 030
     Dates: start: 20010727

REACTIONS (11)
  - Central nervous system lesion [Unknown]
  - Agitation [Unknown]
  - Feeling cold [Not Recovered/Not Resolved]
  - Paralysis [Unknown]
  - Muscular weakness [Unknown]
  - Gait disturbance [Not Recovered/Not Resolved]
  - Emotional distress [Unknown]
  - Depressed mood [Unknown]
  - Drug ineffective [Unknown]
  - Multiple sclerosis [Not Recovered/Not Resolved]
  - Asthenia [Recovered/Resolved]
